FAERS Safety Report 24825716 (Version 1)
Quarter: 2025Q1

REPORT INFORMATION
  Report Type: Spontaneous
  Country: US (occurrence: US)
  Receive Date: 20250109
  Receipt Date: 20250109
  Transmission Date: 20250409
  Serious: No
  Sender: ROCHE
  Company Number: US-ROCHE-10000175472

PATIENT
  Sex: Female

DRUGS (1)
  1. ACTEMRA ACTPEN [Suspect]
     Active Substance: TOCILIZUMAB
     Indication: Systemic scleroderma
     Dosage: 162 MG/0.9 M
     Route: 058
     Dates: start: 202201

REACTIONS (4)
  - Vomiting [Unknown]
  - Dyspnoea [Unknown]
  - Cough [Unknown]
  - Myalgia [Unknown]
